FAERS Safety Report 19207503 (Version 8)
Quarter: 2021Q3

REPORT INFORMATION
  Report Type: Report from Study
  Country: BR (occurrence: BR)
  Receive Date: 20210503
  Receipt Date: 20210929
  Transmission Date: 20211014
  Serious: Yes (Other)
  Sender: FDA-Public Use
  Company Number: NVSC2021BR085741

PATIENT
  Age: 56 Year
  Sex: Female
  Weight: 56 kg

DRUGS (15)
  1. COSENTYX [Suspect]
     Active Substance: SECUKINUMAB
     Dosage: UNK, QMO
     Route: 065
     Dates: start: 20210716
  2. COSENTYX [Suspect]
     Active Substance: SECUKINUMAB
     Dosage: UNK, QMO
     Route: 065
     Dates: start: 20210811
  3. COSENTYX [Suspect]
     Active Substance: SECUKINUMAB
     Indication: PSORIATIC ARTHROPATHY
     Dosage: STARTED 10 YEARS AGO
     Route: 065
  4. COSENTYX [Suspect]
     Active Substance: SECUKINUMAB
     Dosage: UNK, QW
     Route: 065
     Dates: start: 20210409
  5. COSENTYX [Suspect]
     Active Substance: SECUKINUMAB
     Dosage: UNK, QMO
     Route: 065
     Dates: start: 20210523
  6. OMEPRAZOLE. [Concomitant]
     Active Substance: OMEPRAZOLE
     Indication: PRODUCT USED FOR UNKNOWN INDICATION
     Dosage: UNK
     Route: 065
  7. PANTOPRAZOLE [Concomitant]
     Active Substance: PANTOPRAZOLE
     Indication: PROPHYLAXIS
     Dosage: 40 MG, QD
     Route: 048
     Dates: start: 202103
  8. ISONIAZID. [Concomitant]
     Active Substance: ISONIAZID
     Indication: PROPHYLAXIS
     Dosage: 300 MG, QD
     Route: 048
     Dates: start: 202103
  9. PUMPKIN OIL [Concomitant]
     Indication: PRODUCT USED FOR UNKNOWN INDICATION
     Dosage: UNK
     Route: 065
  10. COSENTYX [Suspect]
     Active Substance: SECUKINUMAB
     Dosage: UNK, QW
     Route: 065
     Dates: start: 20210416
  11. COSENTYX [Suspect]
     Active Substance: SECUKINUMAB
     Dosage: UNK, QMO
     Route: 065
     Dates: start: 20210623
  12. COSENTYX [Suspect]
     Active Substance: SECUKINUMAB
     Dosage: UNK, QW
     Route: 065
     Dates: start: 20210423
  13. COSENTYX [Suspect]
     Active Substance: SECUKINUMAB
     Dosage: 150 MG, QW
     Route: 065
     Dates: start: 20210326
  14. COSENTYX [Suspect]
     Active Substance: SECUKINUMAB
     Dosage: UNK, QW
     Route: 065
     Dates: start: 20210402
  15. DULOXETINE. [Concomitant]
     Active Substance: DULOXETINE
     Indication: DEPRESSION
     Dosage: 60 MG, QD
     Route: 048
     Dates: start: 202103

REACTIONS (20)
  - Labyrinthitis [Unknown]
  - Blood pressure systolic increased [Recovered/Resolved]
  - Pruritus [Not Recovered/Not Resolved]
  - Injection site discolouration [Recovering/Resolving]
  - Peripheral swelling [Recovering/Resolving]
  - Abdominal injury [Not Recovered/Not Resolved]
  - Osteosclerosis [Unknown]
  - Condition aggravated [Unknown]
  - Nausea [Unknown]
  - Osteoarthritis [Unknown]
  - Sensitivity to weather change [Unknown]
  - Injection site haemorrhage [Recovered/Resolved]
  - Stress [Recovering/Resolving]
  - Limb injury [Not Recovered/Not Resolved]
  - Back injury [Not Recovered/Not Resolved]
  - Malaise [Unknown]
  - Injury [Not Recovered/Not Resolved]
  - Arthritis [Recovering/Resolving]
  - Rebound effect [Not Recovered/Not Resolved]
  - Arthralgia [Recovering/Resolving]

NARRATIVE: CASE EVENT DATE: 20210402
